FAERS Safety Report 6928959-9 (Version None)
Quarter: 2010Q3

REPORT INFORMATION
  Report Type: 
  Country: None (occurrence: None)
  Receive Date: 20100817
  Receipt Date: 20100805
  Transmission Date: 20110219
  Serious: Yes (Other)
  Sender: FDA-Public Use
  Company Number: US-PFIZER INC-2010098975

PATIENT
  Sex: Female

DRUGS (2)
  1. TOVIAZ [Suspect]
     Indication: POLLAKIURIA
     Dosage: 4 MG, 1X/DAY
     Route: 048
     Dates: start: 20100101
  2. MULTI-VITAMINS [Concomitant]
     Dosage: UNK

REACTIONS (4)
  - CONSTIPATION [None]
  - DRY MOUTH [None]
  - FLUID RETENTION [None]
  - RASH PRURITIC [None]
